FAERS Safety Report 4777803-7 (Version None)
Quarter: 2005Q3

REPORT INFORMATION
  Report Type: 
  Country: None (occurrence: None)
  Receive Date: 20050925
  Receipt Date: 20050914
  Transmission Date: 20060218
  Serious: Yes (Death)
  Sender: FDA-Public Use
  Company Number: US-JNJFOC-20030702157

PATIENT
  Sex: Female
  Weight: 58.06 kg

DRUGS (15)
  1. INFLIXIMAB [Suspect]
     Route: 050
  2. INFLIXIMAB [Suspect]
     Indication: RHEUMATOID ARTHRITIS
     Route: 050
  3. LEVSIN [Concomitant]
  4. SYNTHROID [Concomitant]
  5. ARTHROTEC [Concomitant]
  6. ARTHROTEC [Concomitant]
  7. PREMARIN [Concomitant]
  8. CARAFATE [Concomitant]
  9. NEXIUM [Concomitant]
  10. IRON SUPPLEMENT [Concomitant]
  11. METHOTREXATE [Concomitant]
  12. CALTRATE [Concomitant]
  13. CENTRUM [Concomitant]
  14. CENTRUM [Concomitant]
  15. PROCRIT [Concomitant]

REACTIONS (4)
  - CARDIAC FAILURE CONGESTIVE [None]
  - CORONARY ARTERY ATHEROSCLEROSIS [None]
  - CROHN'S DISEASE [None]
  - GASTROINTESTINAL HAEMORRHAGE [None]
